FAERS Safety Report 20779880 (Version 1)
Quarter: 2022Q2

REPORT INFORMATION
  Report Type: Spontaneous
  Country: US (occurrence: US)
  Receive Date: 20220503
  Receipt Date: 20220503
  Transmission Date: 20220721
  Serious: No
  Sender: FDA-Public Use
  Company Number: US-PFIZER INC-202101851014

PATIENT
  Age: 68 Year
  Sex: Male
  Weight: 104.33 kg

DRUGS (2)
  1. NARDIL [Suspect]
     Active Substance: PHENELZINE SULFATE
     Indication: Panic disorder
     Dosage: 15 MG
  2. DIAZEPAM [Concomitant]
     Active Substance: DIAZEPAM
     Indication: Insomnia
     Dosage: 4 MG, AS NEEDED

REACTIONS (1)
  - Drug ineffective [Unknown]
